FAERS Safety Report 22131564 (Version 2)
Quarter: 2023Q2

REPORT INFORMATION
  Report Type: Spontaneous
  Country: JP (occurrence: JP)
  Receive Date: 20230323
  Receipt Date: 20230405
  Transmission Date: 20230721
  Serious: No
  Sender: FDA-Public Use
  Company Number: JP-DSJP-DSJ-2023-110770

PATIENT
  Age: 90 Year

DRUGS (1)
  1. EDOXABAN TOSYLATE [Suspect]
     Active Substance: EDOXABAN TOSYLATE
     Indication: Myocardial infarction
     Dosage: 15MG/DAY
     Route: 048

REACTIONS (1)
  - Creatinine renal clearance decreased [Unknown]
